FAERS Safety Report 18066666 (Version 1)
Quarter: 2020Q3

REPORT INFORMATION
  Report Type: Spontaneous
  Country: PT (occurrence: PT)
  Receive Date: 20200724
  Receipt Date: 20200724
  Transmission Date: 20201103
  Serious: Yes (Hospitalization, Disabling, Other)
  Sender: FDA-Public Use
  Company Number: PT-MYLANLABS-2019M1080940

PATIENT
  Age: 74 Year
  Sex: Female

DRUGS (14)
  1. SIMVASTATIN. [Suspect]
     Active Substance: SIMVASTATIN
     Indication: PERIPHERAL VENOUS DISEASE
  2. HYDROCHLOROTHIAZIDE/TELMISARTAN [Suspect]
     Active Substance: HYDROCHLOROTHIAZIDE\TELMISARTAN
     Indication: HYPERTENSION
     Dosage: 12.5 MILLIGRAM, QD
  3. AMOXICILLIN/CLAVULANIC ACID [Suspect]
     Active Substance: AMOXICILLIN\CLAVULANIC ACID
     Indication: STAPHYLOCOCCAL INFECTION
     Dosage: UNK
     Route: 048
  4. HYDROCHLOROTHIAZIDE/TELMISARTAN [Suspect]
     Active Substance: HYDROCHLOROTHIAZIDE\TELMISARTAN
     Dosage: TELMISARTAN 80 + HYDROCHLOROTIAZIDE 12.5MG
     Route: 048
  5. HYDROCHLOROTHIAZIDE/TELMISARTAN [Suspect]
     Active Substance: HYDROCHLOROTHIAZIDE\TELMISARTAN
     Dosage: UNK 80/12.5 MG, ONCE DAILY
  6. HYDROXYZINE [Suspect]
     Active Substance: HYDROXYZINE HYDROCHLORIDE
     Indication: DRUG REACTION WITH EOSINOPHILIA AND SYSTEMIC SYMPTOMS
     Dosage: UNK
  7. SIMVASTATIN. [Suspect]
     Active Substance: SIMVASTATIN
     Indication: DYSLIPIDAEMIA
     Dosage: 20 MILLIGRAM, QD
     Route: 048
  8. HYDROCORTISONE. [Suspect]
     Active Substance: HYDROCORTISONE
     Indication: DRUG REACTION WITH EOSINOPHILIA AND SYSTEMIC SYMPTOMS
     Dosage: UNK
  9. AMOXICILLIN/CLAVULANIC ACID [Suspect]
     Active Substance: AMOXICILLIN\CLAVULANIC ACID
     Dosage: 1000 MILLIGRAM
     Route: 048
  10. RIFAMPICIN [Suspect]
     Active Substance: RIFAMPIN
     Indication: STAPHYLOCOCCAL INFECTION
     Dosage: UNK
  11. AMOXICILLIN/CLAVULANIC ACID [Suspect]
     Active Substance: AMOXICILLIN\CLAVULANIC ACID
     Indication: DEVICE RELATED INFECTION
     Dosage: UNK
     Route: 048
  12. BETAMOX /00756801/ [Suspect]
     Active Substance: AMOXICILLIN\CLAVULANATE POTASSIUM
     Indication: JOINT INJURY
     Dosage: 1000 MILLIGRAM
     Route: 048
  13. DOXYCYCLINE. [Suspect]
     Active Substance: DOXYCYCLINE
     Indication: CHOLERA
     Dosage: UNK
  14. RIFAMPICIN [Suspect]
     Active Substance: RIFAMPIN
     Indication: DEVICE RELATED INFECTION
     Dosage: UNK
     Route: 048

REACTIONS (11)
  - Drug-induced liver injury [Recovered/Resolved]
  - Drug reaction with eosinophilia and systemic symptoms [Unknown]
  - Eosinophilia [Recovering/Resolving]
  - Pyrexia [Recovering/Resolving]
  - Pruritus [Recovered/Resolved]
  - Thrombocytosis [Recovering/Resolving]
  - Skin exfoliation [Recovering/Resolving]
  - Rash pruritic [Recovering/Resolving]
  - Cholestasis [Unknown]
  - Jaundice [Recovered/Resolved]
  - Choluria [Recovered/Resolved]
